FAERS Safety Report 11599621 (Version 1)
Quarter: 2015Q4

REPORT INFORMATION
  Report Type: Spontaneous
  Country: US (occurrence: US)
  Receive Date: 20151006
  Receipt Date: 20151006
  Transmission Date: 20160304
  Serious: Yes (Other)
  Sender: FDA-Public Use
  Company Number: US-ASTRAZENECA-2015SE94049

PATIENT
  Sex: Female

DRUGS (1)
  1. BYDUREON [Suspect]
     Active Substance: EXENATIDE
     Indication: TYPE 2 DIABETES MELLITUS
     Dosage: 2 MG 4 COUNT, ONCE A WEEK
     Route: 058

REACTIONS (6)
  - Injection site haemorrhage [Unknown]
  - Injection site injury [Unknown]
  - Somnolence [Unknown]
  - Limb injury [Unknown]
  - Injection site pain [Unknown]
  - Injection site nodule [Unknown]
